FAERS Safety Report 5565822-2 (Version None)
Quarter: 2007Q4

REPORT INFORMATION
  Report Type: 
  Country: None (occurrence: None)
  Receive Date: 20071213
  Receipt Date: 20071128
  Transmission Date: 20080405
  Serious: Yes (Other)
  Sender: FDA-Public Use
  Company Number: E3810-01060-SPO-IT

PATIENT
  Age: 55 Year
  Sex: Female

DRUGS (3)
  1. RABEPRAZOLE SODIUM [Suspect]
     Indication: ABDOMINAL PAIN UPPER
     Dosage: 20 MG, IN THE MORNING, ORAL
     Route: 048
  2. RABEPRAZOLE SODIUM [Suspect]
     Indication: DYSPEPSIA
     Dosage: 20 MG, IN THE MORNING, ORAL
     Route: 048
  3. RABEPRAZOLE SODIUM [Suspect]
     Indication: FLATULENCE
     Dosage: 20 MG, IN THE MORNING, ORAL
     Route: 048

REACTIONS (8)
  - ANXIETY [None]
  - ATTENTION DEFICIT/HYPERACTIVITY DISORDER [None]
  - CONFUSIONAL STATE [None]
  - EROSIVE DUODENITIS [None]
  - GASTROOESOPHAGEAL REFLUX DISEASE [None]
  - HELICOBACTER GASTRITIS [None]
  - PANIC ATTACK [None]
  - SLEEP TERROR [None]
